FAERS Safety Report 15434038 (Version 3)
Quarter: 2020Q4

REPORT INFORMATION
  Report Type: Spontaneous
  Country: US (occurrence: US)
  Receive Date: 20180927
  Receipt Date: 20201102
  Transmission Date: 20210113
  Serious: Yes (Other)
  Sender: FDA-Public Use
  Company Number: US-SA-2018SA266455

PATIENT

DRUGS (27)
  1. DIPHENHYDRAMINE. [Concomitant]
     Active Substance: DIPHENHYDRAMINE
     Dosage: 25 MG
     Route: 065
  2. CARBOPLATIN. [Concomitant]
     Active Substance: CARBOPLATIN
     Dosage: 580 MG, Q3W
     Route: 042
     Dates: start: 20110208, end: 20110208
  3. HERCEPTIN [Concomitant]
     Active Substance: TRASTUZUMAB
     Indication: BREAST CANCER FEMALE
     Dosage: 798 MG, Q3W
     Route: 042
     Dates: start: 20110120, end: 20110120
  4. HERCEPTIN [Concomitant]
     Active Substance: TRASTUZUMAB
     Dosage: 588 MG, Q3W
     Route: 042
     Dates: start: 20110519, end: 20110519
  5. HERCEPTIN [Concomitant]
     Active Substance: TRASTUZUMAB
     Dosage: 588 MG, Q3W
     Route: 042
     Dates: start: 20110609, end: 20110609
  6. HERCEPTIN [Concomitant]
     Active Substance: TRASTUZUMAB
     Dosage: 588 MG, Q3W
     Route: 042
     Dates: start: 20110812, end: 20110812
  7. DEXAMETHASONE. [Concomitant]
     Active Substance: DEXAMETHASONE
     Dosage: 10 MG
     Route: 065
  8. CARBOPLATIN. [Concomitant]
     Active Substance: CARBOPLATIN
     Indication: BREAST CANCER FEMALE
     Dosage: 610 MG, Q3W
     Route: 042
     Dates: start: 20110120, end: 20110120
  9. CARBOPLATIN. [Concomitant]
     Active Substance: CARBOPLATIN
     Dosage: 560 MG, Q3W
     Route: 042
     Dates: start: 20110306, end: 20110306
  10. HERCEPTIN [Concomitant]
     Active Substance: TRASTUZUMAB
     Dosage: 588 MG, Q3W
     Route: 042
     Dates: start: 20110901, end: 20110901
  11. HERCEPTIN [Concomitant]
     Active Substance: TRASTUZUMAB
     Dosage: 609 MG, Q3W
     Route: 042
     Dates: start: 20111118, end: 20111118
  12. TAXOTERE [Suspect]
     Active Substance: DOCETAXEL
     Indication: BREAST CANCER FEMALE
     Dosage: 150 MG, QW
     Route: 042
     Dates: start: 20110120, end: 20110120
  13. HERCEPTIN [Concomitant]
     Active Substance: TRASTUZUMAB
     Dosage: 630 MG, Q3W
     Route: 042
     Dates: start: 20111230, end: 20111230
  14. HERCEPTIN [Concomitant]
     Active Substance: TRASTUZUMAB
     Dosage: 588 MG, Q3W
     Route: 042
     Dates: start: 20110722, end: 20110722
  15. HERCEPTIN [Concomitant]
     Active Substance: TRASTUZUMAB
     Dosage: 588 MG, Q3W
     Route: 042
     Dates: start: 20110923, end: 20110923
  16. HERCEPTIN [Concomitant]
     Active Substance: TRASTUZUMAB
     Dosage: 588 MG, Q3W
     Route: 042
     Dates: start: 20111013, end: 20111013
  17. HERCEPTIN [Concomitant]
     Active Substance: TRASTUZUMAB
     Dosage: 588 MG, Q3W
     Route: 042
     Dates: start: 20110323, end: 20110323
  18. HERCEPTIN [Concomitant]
     Active Substance: TRASTUZUMAB
     Dosage: 588 MG, Q3W
     Route: 042
     Dates: start: 20110425, end: 20110425
  19. HERCEPTIN [Concomitant]
     Active Substance: TRASTUZUMAB
     Dosage: 630 MG, Q3W
     Route: 042
     Dates: start: 20111206, end: 20111206
  20. FAMOTIDINE. [Concomitant]
     Active Substance: FAMOTIDINE
     Dosage: 40 MG
     Route: 065
  21. HERCEPTIN [Concomitant]
     Active Substance: TRASTUZUMAB
     Dosage: 588 MG, Q3W
     Route: 042
     Dates: start: 20110208, end: 20110208
  22. HERCEPTIN [Concomitant]
     Active Substance: TRASTUZUMAB
     Dosage: 588 MG, Q3W
     Route: 042
     Dates: start: 20111103, end: 20111103
  23. PALONOSETRON. [Concomitant]
     Active Substance: PALONOSETRON HYDROCHLORIDE
     Dosage: 0.25 MG
     Route: 065
  24. TAXOTERE [Suspect]
     Active Substance: DOCETAXEL
     Dosage: 150 MG, Q3W
     Route: 042
     Dates: start: 20110323, end: 20110323
  25. CARBOPLATIN. [Concomitant]
     Active Substance: CARBOPLATIN
     Dosage: 540 MG, Q3W
     Route: 042
     Dates: start: 20110323, end: 20110323
  26. HERCEPTIN [Concomitant]
     Active Substance: TRASTUZUMAB
     Dosage: 588 MG, Q3W
     Route: 042
     Dates: start: 20110306, end: 20110306
  27. HERCEPTIN [Concomitant]
     Active Substance: TRASTUZUMAB
     Dosage: 588 MG, Q3W
     Route: 042
     Dates: start: 20110630, end: 20110630

REACTIONS (2)
  - Alopecia [Not Recovered/Not Resolved]
  - Emotional distress [Unknown]

NARRATIVE: CASE EVENT DATE: 201103
